FAERS Safety Report 24717050 (Version 1)
Quarter: 2024Q4

REPORT INFORMATION
  Report Type: Spontaneous
  Country: US (occurrence: US)
  Receive Date: 20241210
  Receipt Date: 20241210
  Transmission Date: 20250115
  Serious: Yes (Death)
  Sender: PFIZER
  Company Number: US-PFIZER INC-202101350860

PATIENT
  Age: 85 Year
  Sex: Male

DRUGS (3)
  1. VYNDAMAX [Suspect]
     Active Substance: TAFAMIDIS
     Indication: Amyloidosis
     Dosage: 61 MG, 1X/DAY
     Route: 048
  2. VYNDAMAX [Suspect]
     Active Substance: TAFAMIDIS
     Dosage: 61 MG
  3. ONPATTRO [Concomitant]
     Active Substance: PATISIRAN SODIUM
     Dosage: INFUSION

REACTIONS (1)
  - Death [Fatal]

NARRATIVE: CASE EVENT DATE: 20241020
